FAERS Safety Report 18935422 (Version 1)
Quarter: 2021Q1

REPORT INFORMATION
  Report Type: Spontaneous
  Country: DE (occurrence: DE)
  Receive Date: 20210224
  Receipt Date: 20210224
  Transmission Date: 20210420
  Serious: Yes (Other)
  Sender: FDA-Public Use
  Company Number: DE-TEVA-2021-DE-1882641

PATIENT
  Age: 44 Year
  Sex: Male

DRUGS (1)
  1. METHOTREXATE. [Suspect]
     Active Substance: METHOTREXATE
     Indication: PSORIATIC ARTHROPATHY
     Dosage: 10 MG, OTHER (EVERY OTHER WEEK),THERAPY START DATE:ASKU
     Route: 058
     Dates: end: 2015

REACTIONS (4)
  - Off label use [Unknown]
  - Product use issue [Unknown]
  - Intestinal haemorrhage [Unknown]
  - Drug ineffective [Unknown]
